FAERS Safety Report 24028941 (Version 1)
Quarter: 2024Q2

REPORT INFORMATION
  Report Type: Spontaneous
  Country: US (occurrence: US)
  Receive Date: 20240628
  Receipt Date: 20240628
  Transmission Date: 20240716
  Serious: Yes (Other)
  Sender: FDA-Public Use
  Company Number: US-INSUD PHARMA-2406US05068

PATIENT

DRUGS (2)
  1. PROGESTERONE [Suspect]
     Active Substance: PROGESTERONE
     Indication: In vitro fertilisation
     Dosage: UNK UNK, DAILY
     Route: 030
  2. ESTROGENS [Concomitant]
     Active Substance: ESTROGENS
     Indication: In vitro fertilisation
     Dosage: UNK UNK, 2X/DAY

REACTIONS (9)
  - Eosinophilic pneumonia acute [Recovered/Resolved]
  - Type IV hypersensitivity reaction [Recovered/Resolved]
  - Dyspnoea [Recovered/Resolved]
  - Pyrexia [Recovered/Resolved]
  - Pain [Recovered/Resolved]
  - Cough [Recovered/Resolved]
  - Oropharyngeal pain [Recovered/Resolved]
  - Nasal congestion [Recovered/Resolved]
  - Hypoxia [Recovered/Resolved]
